FAERS Safety Report 8607237 (Version 2)
Quarter: 2013Q4

REPORT INFORMATION
  Report Type: Spontaneous
  Country: US (occurrence: US)
  Receive Date: 20120611
  Receipt Date: 20131015
  Transmission Date: 20140711
  Serious: Yes (Disabling)
  Sender: FDA-Public Use
  Company Number: US-ASTRAZENECA-2012SE36306

PATIENT
  Sex: Male
  Weight: 59 kg

DRUGS (7)
  1. NEXIUM [Suspect]
     Indication: GASTROOESOPHAGEAL REFLUX DISEASE
     Dosage: ONCE DAILY
     Route: 048
     Dates: start: 1999, end: 2006
  2. PREVACID [Concomitant]
  3. PEPCID [Concomitant]
     Dosage: 2 TABLET A DAY
  4. TUMS [Concomitant]
     Dosage: AS NEEDED
  5. ALKA SELTZER [Concomitant]
     Dosage: AS NEEDED
  6. ROLAIDS [Concomitant]
     Dosage: AS NEEDED
  7. MYLANTA [Concomitant]
     Dosage: AS NEEDED

REACTIONS (6)
  - Mental disorder [Unknown]
  - Limb discomfort [Unknown]
  - Depression [Unknown]
  - Osteoporosis [Unknown]
  - Lower limb fracture [Unknown]
  - Bone disorder [Unknown]
